FAERS Safety Report 8992648 (Version 1)
Quarter: 2013Q1

REPORT INFORMATION
  Report Type: Spontaneous
  Country: BR (occurrence: BR)
  Receive Date: 20130101
  Receipt Date: 20130101
  Transmission Date: 20140127
  Serious: Yes (Hospitalization, Other)
  Sender: FDA-Public Use
  Company Number: PHHY2012BR119328

PATIENT
  Sex: Female
  Weight: 79 kg

DRUGS (8)
  1. SANDOSTATIN LAR (PATIENT BASIS) [Suspect]
     Indication: ACROMEGALY
     Dosage: 20 MG, (2 INJECTIONS MONTHLY)
     Dates: start: 2004, end: 200707
  2. SANDOSTATIN LAR (PATIENT BASIS) [Suspect]
     Dosage: 30 MG, (1 INJECTION MONTHLY)
     Dates: start: 2012
  3. DOSTINEX [Concomitant]
     Indication: ACROMEGALY
  4. METFORMIN [Concomitant]
     Indication: DIABETES MELLITUS
  5. INSULIN [Concomitant]
  6. HYDROCHLOROTHIAZIDE [Concomitant]
     Indication: HYPERTENSION
  7. LIPITOR [Concomitant]
     Indication: BLOOD CHOLESTEROL INCREASED
  8. SELENE                             /00541901/ [Concomitant]
     Indication: ACROMEGALY

REACTIONS (12)
  - Ear infection [Recovering/Resolving]
  - Balance disorder [Recovering/Resolving]
  - Pain [Recovering/Resolving]
  - Diabetes mellitus [Unknown]
  - Cold sweat [Unknown]
  - Dizziness [Unknown]
  - Nausea [Unknown]
  - Hypertension [Unknown]
  - Blood cholesterol increased [Unknown]
  - Exposure during pregnancy [Unknown]
  - Normal newborn [Unknown]
  - Arthralgia [Recovered/Resolved]
